FAERS Safety Report 7911458-5 (Version None)
Quarter: 2011Q4

REPORT INFORMATION
  Report Type: 
  Country: None (occurrence: None)
  Receive Date: 20111101
  Receipt Date: 20101018
  Transmission Date: 20120403
  Serious: Yes (Hospitalization, Other)
  Sender: FDA-Public Use
  Company Number: 249605USA

PATIENT
  Age: 30 Year
  Sex: Female

DRUGS (2)
  1. SPRINTEC [Suspect]
     Indication: MENSTRUAL CYCLE MANAGEMENT
     Dates: start: 20100601, end: 20100723
  2. TRI-PREVIFEM [Concomitant]
     Indication: MENSTRUAL CYCLE MANAGEMENT
     Dates: start: 20090101, end: 20100701

REACTIONS (2)
  - THROMBOSIS [None]
  - PULMONARY THROMBOSIS [None]
